FAERS Safety Report 24732126 (Version 1)
Quarter: 2024Q4

REPORT INFORMATION
  Report Type: Spontaneous
  Country: DE (occurrence: DE)
  Receive Date: 20241213
  Receipt Date: 20241213
  Transmission Date: 20250115
  Serious: Yes (Death, Hospitalization, Other)
  Sender: MYLAN
  Company Number: None

PATIENT
  Sex: Female

DRUGS (4)
  1. PREGABALIN [Suspect]
     Active Substance: PREGABALIN
     Indication: Product used for unknown indication
     Dosage: 25 MILLIGRAM
     Route: 065
     Dates: start: 20240112
  2. PREGABALIN [Suspect]
     Active Substance: PREGABALIN
     Dosage: 50 MILLIGRAM
     Route: 065
  3. CORTISONE [Suspect]
     Active Substance: CORTISONE
     Indication: Product used for unknown indication
     Dosage: UNK
     Route: 065
  4. LEVOTHYROXINE SODIUM [Suspect]
     Active Substance: LEVOTHYROXINE SODIUM
     Indication: Autoimmune thyroiditis
     Dosage: UNK
     Route: 065

REACTIONS (18)
  - Hypothyroidism [Fatal]
  - Tri-iodothyronine free decreased [Fatal]
  - Pulse abnormal [Unknown]
  - Neuralgia [Unknown]
  - Blood pressure abnormal [Unknown]
  - Fatigue [Unknown]
  - Dizziness [Unknown]
  - Autoimmune thyroiditis [Unknown]
  - Rheumatoid arthritis [Unknown]
  - Autoimmune disorder [Unknown]
  - Neurological symptom [Unknown]
  - Condition aggravated [Unknown]
  - Thyroxine free decreased [Unknown]
  - C-reactive protein increased [Unknown]
  - Adrenal disorder [Unknown]
  - Blood iron increased [Unknown]
  - Somnolence [Unknown]
  - Visual impairment [Unknown]
